FAERS Safety Report 9498899 (Version 1)
Quarter: 2013Q3

REPORT INFORMATION
  Report Type: Spontaneous
  Country: US (occurrence: None)
  Receive Date: 20130830
  Receipt Date: 20130830
  Transmission Date: 20140515
  Serious: Yes (Death)
  Sender: FDA-Public Use
  Company Number: IPN-00275

PATIENT
  Age: 48 Year
  Sex: Female

DRUGS (2)
  1. INNOPRAN XL [Suspect]
     Route: 048
     Dates: start: 20110603
  2. ZOVIRAX [Suspect]
     Route: 048
     Dates: start: 20110603

REACTIONS (1)
  - Death [None]
